FAERS Safety Report 6304023-7 (Version None)
Quarter: 2009Q3

REPORT INFORMATION
  Report Type: 
  Country: None (occurrence: None)
  Receive Date: 20090810
  Receipt Date: 20090709
  Transmission Date: 20100115
  Serious: Yes (Life-Threatening, Hospitalization, Disabling, Other)
  Sender: FDA-Public Use
  Company Number: GB-PFIZER INC-2009214224

PATIENT
  Age: 71 Year

DRUGS (2)
  1. INSPRA [Suspect]
     Indication: BREAST CANCER
     Dosage: 25 MG, UNK
     Route: 048
  2. AROMASIN [Suspect]
     Indication: BREAST CANCER
     Route: 048

REACTIONS (8)
  - BLOOD SODIUM DECREASED [None]
  - BREAST CANCER [None]
  - CONFUSIONAL STATE [None]
  - DRUG DISPENSING ERROR [None]
  - DYSPHEMIA [None]
  - FEMUR FRACTURE [None]
  - METASTASES TO BONE [None]
  - SPEECH DISORDER [None]
